FAERS Safety Report 16932569 (Version 1)
Quarter: 2019Q4

REPORT INFORMATION
  Report Type: Spontaneous
  Country: US (occurrence: US)
  Receive Date: 20191017
  Receipt Date: 20191017
  Transmission Date: 20200122
  Serious: No
  Sender: FDA-Public Use
  Company Number: US-009507513-1910USA001215

PATIENT
  Age: 30 Year
  Sex: Female
  Weight: 154.2 kg

DRUGS (2)
  1. NEXPLANON [Suspect]
     Active Substance: ETONOGESTREL
     Dosage: RIGHT ARM
     Dates: start: 20190919
  2. NEXPLANON [Suspect]
     Active Substance: ETONOGESTREL
     Dosage: LEFT ARM
     Dates: start: 20190826, end: 20190919

REACTIONS (7)
  - Implant site irritation [Not Recovered/Not Resolved]
  - Implant site pain [Not Recovered/Not Resolved]
  - Product quality issue [Unknown]
  - Implant site erythema [Not Recovered/Not Resolved]
  - Incorrect product administration duration [Unknown]
  - Implant site pain [Not Recovered/Not Resolved]
  - Implant site pruritus [Not Recovered/Not Resolved]

NARRATIVE: CASE EVENT DATE: 2019
